FAERS Safety Report 11221080 (Version 1)
Quarter: 2015Q2

REPORT INFORMATION
  Report Type: Spontaneous
  Country: US (occurrence: None)
  Receive Date: 20150625
  Receipt Date: 20150625
  Transmission Date: 20150821
  Serious: Yes (Other)
  Sender: FDA-Public Use
  Company Number: None

PATIENT
  Age: 63 Year
  Sex: Male
  Weight: 79.83 kg

DRUGS (6)
  1. CALCIPOTRIENE OINTMENT .005% TARO [Suspect]
     Active Substance: CALCIPOTRIENE
     Indication: PSORIASIS
     Dosage: APPLIED TO A SURFACE, USUALLY THE SKIN
  2. ALBUTEROL. [Concomitant]
     Active Substance: ALBUTEROL
  3. VALIIUM [Concomitant]
  4. CLIDINIUM [Concomitant]
     Active Substance: CLIDINIUM
  5. MULTIVITAMIN [Concomitant]
     Active Substance: VITAMINS
  6. VITAMIN C [Concomitant]
     Active Substance: ASCORBIC ACID

REACTIONS (5)
  - Product quality issue [None]
  - Psoriasis [None]
  - Product physical issue [None]
  - Product substitution issue [None]
  - Drug effect decreased [None]

NARRATIVE: CASE EVENT DATE: 20150618
